FAERS Safety Report 14149132 (Version 1)
Quarter: 2017Q4

REPORT INFORMATION
  Report Type: Spontaneous
  Country: US (occurrence: US)
  Receive Date: 20171101
  Receipt Date: 20171101
  Transmission Date: 20180321
  Serious: Yes (Other)
  Sender: FDA-Public Use
  Company Number: US-PFIZER INC-2017467685

PATIENT
  Age: 51 Year
  Sex: Male

DRUGS (16)
  1. REGLAN [Concomitant]
     Active Substance: METOCLOPRAMIDE HYDROCHLORIDE
     Dosage: 5 MG, 4X/DAY
     Route: 048
  2. NOVOLOG [Concomitant]
     Active Substance: INSULIN ASPART
     Dosage: UNK
  3. SUTENT [Suspect]
     Active Substance: SUNITINIB MALATE
     Indication: PANCREATIC CARCINOMA
     Dosage: 37.5 MG, CYCLIC (SUTENT FOR 3 WEEKS)
     Route: 048
  4. COLACE [Concomitant]
     Active Substance: DOCUSATE SODIUM
     Dosage: 100 MG, DAILY
     Route: 048
  5. CREON [Concomitant]
     Active Substance: PANCRELIPASE AMYLASE\PANCRELIPASE LIPASE\PANCRELIPASE PROTEASE
     Dosage: 72000 IU, 3X/DAY (2 CAPSULE(S) BY MOUTH THREE TIMES PER DAY TAKE AT BEGINNING OF EACH RNEAL)
     Route: 048
  6. ZOFRAN [Concomitant]
     Active Substance: ONDANSETRON HYDROCHLORIDE
     Dosage: 4 MG, 4X/DAY
     Route: 048
  7. XELODA [Concomitant]
     Active Substance: CAPECITABINE
     Dosage: UNK
     Dates: start: 201307
  8. OMEPRAZOLE. [Concomitant]
     Active Substance: OMEPRAZOLE
     Dosage: 20 MG, DAILY
     Route: 048
  9. LEVEMIR [Concomitant]
     Active Substance: INSULIN DETEMIR
     Dosage: 8 IU, DAILY
     Route: 058
  10. CYMBALTA [Concomitant]
     Active Substance: DULOXETINE HYDROCHLORIDE
     Dosage: 60 MG, DAILY
     Route: 048
  11. METOPROLOL TARTRATE. [Concomitant]
     Active Substance: METOPROLOL TARTRATE
     Dosage: 25 MG, 2X/DAY
     Route: 048
  12. OXYCODONE [Concomitant]
     Active Substance: OXYCODONE
     Indication: PAIN
     Dosage: 5 MG, EVERY 6 HOURS AS NEEDED
     Route: 048
  13. SANDOSTATIN LAR DEPOT [Suspect]
     Active Substance: OCTREOTIDE ACETATE
     Indication: PANCREATIC CARCINOMA
     Dosage: UNK
     Dates: start: 201306
  14. CLONAZEPAM. [Concomitant]
     Active Substance: CLONAZEPAM
     Dosage: 0.5 MG, 3X/DAY
     Route: 048
  15. FLOMAX [Concomitant]
     Active Substance: TAMSULOSIN HYDROCHLORIDE
     Dosage: 0.4 MG, DAILY
     Route: 048
  16. TEMODAR [Concomitant]
     Active Substance: TEMOZOLOMIDE
     Dosage: UNK
     Dates: start: 201307

REACTIONS (3)
  - Hypoglycaemia [Unknown]
  - Nephrolithiasis [Unknown]
  - Blood glucose increased [Recovered/Resolved]
